FAERS Safety Report 18751137 (Version 3)
Quarter: 2022Q3

REPORT INFORMATION
  Report Type: Spontaneous
  Country: JP (occurrence: JP)
  Receive Date: 20210118
  Receipt Date: 20220714
  Transmission Date: 20221026
  Serious: Yes (Hospitalization, Other)
  Sender: FDA-Public Use
  Company Number: JP-GLAXOSMITHKLINE-JP2021JPN006167

PATIENT

DRUGS (7)
  1. LAMICTAL [Suspect]
     Active Substance: LAMOTRIGINE
     Indication: Depressive symptom
     Dosage: 25 MG, 1D
     Route: 048
     Dates: start: 20200930, end: 20201013
  2. LAMICTAL [Suspect]
     Active Substance: LAMOTRIGINE
     Indication: Delusion
     Dosage: 50 MG, 1D
     Route: 048
     Dates: start: 20201014, end: 20201027
  3. LAMICTAL [Suspect]
     Active Substance: LAMOTRIGINE
     Dosage: 100 MG, QD
     Route: 048
     Dates: start: 20201028, end: 20201104
  4. OLANZAPINE [Concomitant]
     Active Substance: OLANZAPINE
     Indication: Schizophrenia
     Dosage: 15 MG, QD
     Route: 048
     Dates: start: 20200930, end: 20201120
  5. RISPERIDONE OD TABLETS [Concomitant]
     Indication: Schizophrenia
     Dosage: 4 MG, BID
     Route: 048
     Dates: start: 20201014
  6. CARBOHYDRATES\FATTY ACIDS\MINERALS\PROTEIN\VITAMINS [Concomitant]
     Active Substance: CARBOHYDRATES\FATTY ACIDS\MINERALS\PROTEIN\VITAMINS
     Indication: Nutritional supplementation
     Dosage: 250 ML, QD
     Route: 048
     Dates: start: 20201027, end: 20201124
  7. MAGNESIUM OXIDE [Concomitant]
     Active Substance: MAGNESIUM OXIDE
     Indication: Constipation
     Dosage: 330 MG, QD
     Route: 048
     Dates: start: 20190305

REACTIONS (9)
  - Drug eruption [Recovered/Resolved]
  - Drug reaction with eosinophilia and systemic symptoms [Recovered/Resolved]
  - Lip erosion [Recovered/Resolved]
  - Oral mucosa erosion [Recovered/Resolved]
  - Lip scab [Recovered/Resolved]
  - Oral mucosal scab [Recovered/Resolved]
  - Rash maculo-papular [Recovered/Resolved]
  - Product use in unapproved indication [Unknown]
  - Off label use [Unknown]

NARRATIVE: CASE EVENT DATE: 20200930
